FAERS Safety Report 10595820 (Version 1)
Quarter: 2014Q4

REPORT INFORMATION
  Report Type: Spontaneous
  Country: JP (occurrence: JP)
  Receive Date: 20141120
  Receipt Date: 20141120
  Transmission Date: 20150529
  Serious: Yes (Other)
  Sender: FDA-Public Use
  Company Number: JP-ABBVIE-14P-087-1310399-00

PATIENT
  Age: 71 Year
  Sex: Male

DRUGS (1)
  1. SEVORANE [Suspect]
     Active Substance: SEVOFLURANE
     Indication: PRODUCT USED FOR UNKNOWN INDICATION
     Route: 055

REACTIONS (3)
  - Hypertension [Unknown]
  - Pulmonary oedema [Unknown]
  - Cardiac failure [Unknown]
